FAERS Safety Report 18780411 (Version 1)
Quarter: 2021Q1

REPORT INFORMATION
  Report Type: Other
  Country: US (occurrence: US)
  Receive Date: 20210125
  Receipt Date: 20210125
  Transmission Date: 20210419
  Serious: Yes (Hospitalization, Other)
  Sender: FDA-Public Use
  Company Number: US-ENCUBE-000033

PATIENT
  Age: 65 Year
  Sex: Female

DRUGS (2)
  1. CLINDAMYCIN. [Suspect]
     Active Substance: CLINDAMYCIN
     Indication: PRODUCT USED FOR UNKNOWN INDICATION
     Dosage: 10 DAY COURSE INITIALLY
     Route: 065
  2. CLINDAMYCIN. [Suspect]
     Active Substance: CLINDAMYCIN
     Indication: PRODUCT USED FOR UNKNOWN INDICATION
     Dosage: A DOSE OF INTRAVENOUS CLINDAMYCIN
     Route: 042

REACTIONS (4)
  - Lemierre syndrome [Recovered/Resolved]
  - Condition aggravated [Unknown]
  - Drug resistance [Unknown]
  - Tooth infection [Unknown]
